FAERS Safety Report 8717123 (Version 3)
Quarter: 2012Q4

REPORT INFORMATION
  Report Type: Report from Study
  Country: AU (occurrence: AU)
  Receive Date: 20120810
  Receipt Date: 20120905
  Transmission Date: 20130627
  Serious: Yes (Hospitalization, Other)
  Sender: FDA-Public Use
  Company Number: AU-CELGENEUS-008-50794-12080231

PATIENT
  Age: 78 Year
  Sex: Male

DRUGS (10)
  1. VIDAZA [Suspect]
     Indication: ACUTE MYELOID LEUKEMIA
     Dosage: 165 Milligram
     Route: 065
     Dates: start: 20101220
  2. VIDAZA [Suspect]
     Dosage: 158 Milligram
     Route: 065
     Dates: start: 20120730, end: 20120802
  3. EVEROLIMUS [Suspect]
     Indication: ACUTE MYELOID LEUKEMIA
     Dosage: 10 Milligram
     Route: 065
     Dates: start: 20101224
  4. EVEROLIMUS [Suspect]
     Dosage: 2.5 Milligram
     Route: 065
  5. VALACICLOVIR [Concomitant]
     Indication: DRUG USE FOR UNKNOWN INDICATION
     Dosage: 1000 Milligram
     Route: 065
  6. TRANEXAMIC ACID [Concomitant]
     Indication: DRUG USE FOR UNKNOWN INDICATION
     Dosage: 3 Gram
     Route: 065
  7. PYRIDOXINE [Concomitant]
     Indication: DRUG USE FOR UNKNOWN INDICATION
     Dosage: 50 Milligram
     Route: 065
  8. POSACONAZOLE [Concomitant]
     Indication: DRUG USE FOR UNKNOWN INDICATION
     Dosage: 600 Milligram
     Route: 065
  9. DUODART [Concomitant]
     Indication: DRUG USE FOR UNKNOWN INDICATION
     Route: 065
  10. ALLOPURINOL [Concomitant]
     Indication: DRUG USE FOR UNKNOWN INDICATION
     Dosage: 100 Milligram
     Route: 065

REACTIONS (5)
  - Atrial flutter [Recovered/Resolved]
  - Renal failure acute [Recovered/Resolved]
  - Abdominal pain [Recovered/Resolved]
  - Diarrhoea [Recovered/Resolved]
  - Febrile neutropenia [Recovered/Resolved]
